FAERS Safety Report 25131526 (Version 1)
Quarter: 2025Q1

REPORT INFORMATION
  Report Type: Spontaneous
  Country: US (occurrence: US)
  Receive Date: 20250327
  Receipt Date: 20250327
  Transmission Date: 20250408
  Serious: Yes (Other)
  Sender: EMD SERONO INC
  Company Number: US-Merck Healthcare KGaA-2025014517

PATIENT
  Age: 43 Year

DRUGS (4)
  1. CLADRIBINE [Suspect]
     Active Substance: CLADRIBINE
     Indication: Multiple sclerosis
     Dates: start: 20190917, end: 20190921
  2. CLADRIBINE [Suspect]
     Active Substance: CLADRIBINE
  3. CLADRIBINE [Suspect]
     Active Substance: CLADRIBINE
  4. CLADRIBINE [Suspect]
     Active Substance: CLADRIBINE

REACTIONS (1)
  - Hepatitis B [Unknown]

NARRATIVE: CASE EVENT DATE: 20240801
